FAERS Safety Report 16309472 (Version 5)
Quarter: 2019Q3

REPORT INFORMATION
  Report Type: Report from Study
  Country: None (occurrence: CH)
  Receive Date: 20190514
  Receipt Date: 20190907
  Transmission Date: 20191004
  Serious: Yes (Other)
  Sender: FDA-Public Use
  Company Number: CH-ABBVIE-19S-151-2781720-00

PATIENT
  Sex: Male

DRUGS (10)
  1. DUODOPA [Suspect]
     Active Substance: CARBIDOPA\LEVODOPA
     Indication: PARKINSON^S DISEASE
     Route: 050
     Dates: start: 20140113, end: 20181127
  2. DUODOPA [Suspect]
     Active Substance: CARBIDOPA\LEVODOPA
     Dosage: CRD 0.5 ML/H, ED 0.2 ML. 16 H THERAPY
     Route: 050
     Dates: start: 20190506, end: 201905
  3. DUODOPA [Suspect]
     Active Substance: CARBIDOPA\LEVODOPA
     Dosage: MD 0 ML, CRD 0.5 ML/H, ED 0.2 ML
     Route: 050
     Dates: start: 20190506
  4. DUODOPA [Suspect]
     Active Substance: CARBIDOPA\LEVODOPA
     Dosage: MORNING DOSE 4 ML, CONTINUOUS RATE DAY 1.2 ML/H, EXTRA DOSE 1 ML
     Route: 050
     Dates: start: 20190718, end: 20190721
  5. DUODOPA [Suspect]
     Active Substance: CARBIDOPA\LEVODOPA
     Dosage: MD 0, CRD 1.2 ML/H, INCREASED BY 0.1 ML EVERY 3 DAYS, ED 0.4 ML
     Route: 050
     Dates: start: 20190718, end: 2019
  6. DUODOPA [Suspect]
     Active Substance: CARBIDOPA\LEVODOPA
     Dosage: MORNING DOSE 4 ML, CONTINUOUS RATE DAY 1.4 ML/H, EXTRA DOSE 1 ML
     Route: 050
     Dates: start: 20190721
  7. GUTRON [Concomitant]
     Active Substance: MIDODRINE
     Indication: BLOOD PRESSURE ABNORMAL
  8. DUODOPA [Suspect]
     Active Substance: CARBIDOPA\LEVODOPA
     Dosage: MD 0,CRD 0.5 ML/H,CONTINUOUSLY INCREASED BY0.1 ML EVERY 3 DAYS SINCE14 DAYS,ED 0.2 ML
     Route: 050
     Dates: start: 20190704, end: 20190718
  9. DUODOPA [Suspect]
     Active Substance: CARBIDOPA\LEVODOPA
     Dosage: MD 3ML CRD 0.4 ML/H ED 0.2 ML ED BLOCKING TIME 1 H LOCK LEVEL 016 H THERAPY
     Route: 050
     Dates: start: 201905
  10. DUODOPA [Suspect]
     Active Substance: CARBIDOPA\LEVODOPA
     Dosage: MD 3 ML, CRD 0.4 ML/H, ED 0.2 ML, ED BLOCKING TIME 1 H LOCK LEVEL 0
     Route: 050
     Dates: start: 201905, end: 20190506

REACTIONS (14)
  - Weight decreased [Unknown]
  - Hallucination [Recovered/Resolved]
  - Rapid eye movement sleep behaviour disorder [Unknown]
  - Blood pressure abnormal [Unknown]
  - Basal cell carcinoma [Unknown]
  - Saliva altered [Not Recovered/Not Resolved]
  - Bradykinesia [Unknown]
  - Akinesia [Unknown]
  - Tremor [Unknown]
  - Device alarm issue [Unknown]
  - Muscle rigidity [Not Recovered/Not Resolved]
  - Salivary hypersecretion [Not Recovered/Not Resolved]
  - Enteral nutrition [Unknown]
  - Dysphagia [Not Recovered/Not Resolved]
